FAERS Safety Report 9306863 (Version 2)
Quarter: 2013Q3

REPORT INFORMATION
  Report Type: Spontaneous
  Country: US (occurrence: US)
  Receive Date: 20130523
  Receipt Date: 20130808
  Transmission Date: 20140515
  Serious: Yes (Other)
  Sender: FDA-Public Use
  Company Number: CHPA2013US008592

PATIENT
  Age: 75 Year
  Sex: Male

DRUGS (4)
  1. NUPERCAINAL HEMORRHOIDAL/ANES OINTMENT [Suspect]
     Indication: ARTHROPOD BITE
     Dosage: UNK, UP TO THREE TIMES PER DAY, AS NEEDED
     Route: 065
  2. NUPERCAINAL HEMORRHOIDAL/ANES OINTMENT [Suspect]
     Indication: HAEMORRHOIDS
  3. NUPERCAINAL HEMORRHOIDAL/ANES OINTMENT [Suspect]
     Indication: THERMAL BURN
  4. NUPERCAINAL HEMORRHOIDAL/ANES OINTMENT [Suspect]
     Indication: PRURITUS

REACTIONS (4)
  - Cardiac failure [Recovered/Resolved]
  - Off label use [Unknown]
  - Incorrect dose administered [Unknown]
  - Overdose [Unknown]
